FAERS Safety Report 8800926 (Version 2)
Quarter: 2015Q2

REPORT INFORMATION
  Report Type: Report from Study
  Country: US (occurrence: US)
  Receive Date: 20120920
  Receipt Date: 20150414
  Transmission Date: 20150821
  Serious: Yes (Death, Other)
  Sender: FDA-Public Use
  Company Number: US-ROCHE-CID000000002105208

PATIENT
  Sex: Male
  Weight: 149.37 kg

DRUGS (21)
  1. 5-FLUOROURACIL [Concomitant]
     Active Substance: FLUOROURACIL
     Route: 042
  2. AVASTIN [Suspect]
     Active Substance: BEVACIZUMAB
     Indication: COLON CANCER
     Route: 042
     Dates: start: 20050627
  3. TYLENOL [Concomitant]
     Active Substance: ACETAMINOPHEN
  4. FUROSEMIDE. [Concomitant]
     Active Substance: FUROSEMIDE
  5. COREG [Concomitant]
     Active Substance: CARVEDILOL
  6. NORVASC [Concomitant]
     Active Substance: AMLODIPINE BESYLATE
  7. 5-FLUOROURACIL [Concomitant]
     Active Substance: FLUOROURACIL
     Route: 042
  8. ANZEMET [Concomitant]
     Active Substance: DOLASETRON MESYLATE
     Route: 042
  9. SODIUM CHLORIDE. [Concomitant]
     Active Substance: SODIUM CHLORIDE
  10. DEXTROSE. [Concomitant]
     Active Substance: DEXTROSE
     Route: 042
  11. INDOCIN [Concomitant]
     Active Substance: INDOMETHACIN\INDOMETHACIN SODIUM
  12. AVASTIN [Suspect]
     Active Substance: BEVACIZUMAB
     Indication: COLON CANCER
     Route: 042
  13. PROCRIT [Concomitant]
     Active Substance: ERYTHROPOIETIN
     Route: 058
  14. LORAZEPAM. [Concomitant]
     Active Substance: LORAZEPAM
  15. DEXAMETHASONE. [Concomitant]
     Active Substance: DEXAMETHASONE
     Route: 065
  16. POTASSIUM CHLORIDE. [Concomitant]
     Active Substance: POTASSIUM CHLORIDE
  17. OXALIPLATIN. [Concomitant]
     Active Substance: OXALIPLATIN
     Route: 042
  18. NYSTATIN SUSPENSION [Concomitant]
     Active Substance: NYSTATIN
  19. LEUCOVORIN CALCIUM. [Concomitant]
     Active Substance: LEUCOVORIN CALCIUM
     Route: 042
  20. GLYBURIDE. [Concomitant]
     Active Substance: GLYBURIDE
  21. AVALIDE [Concomitant]
     Active Substance: HYDROCHLOROTHIAZIDE\IRBESARTAN

REACTIONS (42)
  - Headache [Unknown]
  - Hepatosplenomegaly [Unknown]
  - Hyperglycaemia [Unknown]
  - Oedema peripheral [Unknown]
  - Tinnitus [Unknown]
  - Pleural effusion [Unknown]
  - Gout [Unknown]
  - Diaphragmatic disorder [Unknown]
  - Dyspnoea exertional [Unknown]
  - Pain in extremity [Unknown]
  - Hypopnoea [Unknown]
  - Nocturia [Unknown]
  - Body temperature decreased [Unknown]
  - Leukopenia [Unknown]
  - Bone density decreased [Unknown]
  - Abnormal faeces [Unknown]
  - Discomfort [Unknown]
  - Nausea [Unknown]
  - Pancytopenia [Unknown]
  - Nipple pain [Unknown]
  - Dry skin [Unknown]
  - Generalised oedema [Unknown]
  - Salivary gland enlargement [Unknown]
  - Constipation [Unknown]
  - Visual acuity reduced [Unknown]
  - Lacrimation increased [Unknown]
  - Dyspepsia [Unknown]
  - Oral pain [Unknown]
  - Pruritus [Unknown]
  - Increased tendency to bruise [Unknown]
  - Nail pitting [Unknown]
  - Paraesthesia [Unknown]
  - Hypertension [Unknown]
  - Death [Fatal]
  - Prostatomegaly [Unknown]
  - Mucosal inflammation [Unknown]
  - Ascites [Recovered/Resolved]
  - Fatigue [Unknown]
  - Thrombocytopenia [Unknown]
  - Renal failure [Unknown]
  - Vomiting [Unknown]
  - Parotid gland enlargement [Unknown]
